FAERS Safety Report 5945696-8 (Version None)
Quarter: 2008Q4

REPORT INFORMATION
  Report Type: 
  Country: None (occurrence: None)
  Receive Date: 20081104
  Receipt Date: 20081022
  Transmission Date: 20090506
  Serious: Yes (Hospitalization)
  Sender: FDA-Public Use
  Company Number: 2008BI026271

PATIENT
  Age: 42 Year
  Sex: Female
  Weight: 60 kg

DRUGS (3)
  1. TYSABRI [Suspect]
     Indication: MULTIPLE SCLEROSIS
     Dosage: 300 MG; QM; IV
     Route: 042
     Dates: start: 20080501, end: 20080901
  2. PHENYTOIN [Concomitant]
  3. CARBAMAZEPINE [Concomitant]

REACTIONS (4)
  - CONVULSION [None]
  - ENCEPHALITIS HERPES [None]
  - FUNGAL INFECTION [None]
  - OPPORTUNISTIC INFECTION [None]
